FAERS Safety Report 7879788-3 (Version None)
Quarter: 2011Q4

REPORT INFORMATION
  Report Type: 
  Country: None (occurrence: None)
  Receive Date: 20111101
  Receipt Date: 20100504
  Transmission Date: 20120403
  Serious: No
  Sender: FDA-Public Use
  Company Number: US-BAYER-201022022NA

PATIENT
  Sex: Female

DRUGS (11)
  1. NORVASC [Concomitant]
  2. GABAPENTIN [Concomitant]
  3. COZAAR [Concomitant]
  4. AVELOX [Suspect]
     Indication: COUGH
     Dosage: 400 MG, QD
     Dates: start: 20100421, end: 20100429
  5. FUROSEMIDE [Concomitant]
  6. LANTUS [Concomitant]
  7. AVELOX [Suspect]
     Indication: PNEUMONIA
  8. HUMALOG [Concomitant]
  9. PREMARIN [Concomitant]
  10. LEVOTHYROXINE SODIUM [Concomitant]
  11. SIMVASTATIN [Concomitant]

REACTIONS (3)
  - COUGH [None]
  - TREMOR [None]
  - FATIGUE [None]
